FAERS Safety Report 13951784 (Version 1)
Quarter: 2017Q3

REPORT INFORMATION
  Report Type: Spontaneous
  Country: US (occurrence: US)
  Receive Date: 20170908
  Receipt Date: 20170908
  Transmission Date: 20171128
  Serious: No
  Sender: FDA-Public Use
  Company Number: US-IMPAX LABORATORIES, INC-2017-IPXL-00765

PATIENT
  Age: 57 Year
  Sex: Female
  Weight: 54 kg

DRUGS (4)
  1. LAMOTRIGINE ODT [Suspect]
     Active Substance: LAMOTRIGINE
     Indication: SEIZURE
     Dosage: 200 MG TABLET, 2 /DAY
     Route: 048
     Dates: start: 2016
  2. ALEVE [Concomitant]
     Active Substance: NAPROXEN SODIUM
     Indication: ARTHRALGIA
     Dosage: 220 MG, UNK
     Route: 065
     Dates: start: 2016
  3. ONDANSETRON [Concomitant]
     Active Substance: ONDANSETRON
     Indication: NAUSEA
     Dosage: 8 MG, UNK
     Route: 065
     Dates: start: 2014
  4. DOXORUBICIN [Concomitant]
     Active Substance: DOXORUBICIN
     Indication: BRAIN NEOPLASM
     Dosage: UNK
     Route: 065
     Dates: start: 201609

REACTIONS (3)
  - Product packaging issue [Unknown]
  - Product taste abnormal [Unknown]
  - Nausea [Unknown]
